FAERS Safety Report 12578624 (Version 1)
Quarter: 2016Q3

REPORT INFORMATION
  Report Type: Spontaneous
  Country: US (occurrence: None)
  Receive Date: 20160720
  Receipt Date: 20160720
  Transmission Date: 20161109
  Serious: Yes (Hospitalization)
  Sender: FDA-Public Use
  Company Number: None

PATIENT
  Age: 53 Year
  Sex: Male
  Weight: 66.6 kg

DRUGS (2)
  1. ERBITUX [Suspect]
     Active Substance: CETUXIMAB
     Dates: end: 20150520
  2. TAXOTERE [Suspect]
     Active Substance: DOCETAXEL
     Dates: end: 20150520

REACTIONS (9)
  - Pyrexia [None]
  - Superinfection [None]
  - Radiation skin injury [None]
  - Cellulitis [None]
  - White blood cell count increased [None]
  - Staphylococcus test positive [None]
  - Pleural effusion [None]
  - Eye irritation [None]
  - Drug eruption [None]

NARRATIVE: CASE EVENT DATE: 20150526
